FAERS Safety Report 4538671-1 (Version None)
Quarter: 2004Q4

REPORT INFORMATION
  Report Type: 
  Country: None (occurrence: None)
  Receive Date: 20041222
  Receipt Date: 20041203
  Transmission Date: 20050328
  Serious: Yes (Death)
  Sender: FDA-Public Use
  Company Number: 04-324

PATIENT
  Age: 25 Year

DRUGS (3)
  1. IBUPROFEN [Suspect]
  2. DIPHENHYDRAMINE (DIPHENHYDRAMINE) [Suspect]
  3. PSEUDOEPHEDRINE (PSEUDOEPHEDRINE) [Suspect]

REACTIONS (3)
  - CARDIAC ARREST [None]
  - MULTIPLE DRUG OVERDOSE INTENTIONAL [None]
  - RESPIRATORY ARREST [None]
